FAERS Safety Report 7634044-3 (Version None)
Quarter: 2011Q3

REPORT INFORMATION
  Report Type: 
  Country: None (occurrence: None)
  Receive Date: 20110725
  Receipt Date: 20110715
  Transmission Date: 20111222
  Serious: Yes (Hospitalization, Disabling, Other)
  Sender: FDA-Public Use
  Company Number: US-PFIZER INC-2011082195

PATIENT
  Sex: Female

DRUGS (6)
  1. SEROQUEL [Concomitant]
     Indication: DEPRESSION
     Dosage: UNK
     Dates: start: 20070501
  2. KLONOPIN [Concomitant]
     Indication: ANXIETY
     Dosage: UNK
     Dates: start: 20070301, end: 20090101
  3. WELLBUTRIN [Concomitant]
     Indication: DEPRESSION
     Dosage: UNK
     Dates: start: 20070501, end: 20080101
  4. AMBIEN [Concomitant]
     Indication: INSOMNIA
     Dosage: UNK
     Dates: start: 20070501
  5. CELEXA [Concomitant]
     Indication: DEPRESSION
     Dosage: UNK
     Dates: start: 20070201, end: 20090101
  6. CHANTIX [Suspect]
     Indication: SMOKING CESSATION THERAPY
     Dosage: STARTER PACK AND CONTINUING PACK
     Dates: start: 20071019, end: 20071030

REACTIONS (8)
  - HOMICIDAL IDEATION [None]
  - AGGRESSION [None]
  - SUICIDE ATTEMPT [None]
  - SUICIDAL IDEATION [None]
  - INTENTIONAL OVERDOSE [None]
  - DEPRESSION [None]
  - PSYCHOTIC DISORDER [None]
  - ANXIETY [None]
